FAERS Safety Report 9351802 (Version 3)
Quarter: 2013Q3

REPORT INFORMATION
  Report Type: Spontaneous
  Country: US (occurrence: US)
  Receive Date: 20130617
  Receipt Date: 20130926
  Transmission Date: 20140515
  Serious: Yes (Hospitalization, Other)
  Sender: FDA-Public Use
  Company Number: US-BIOGENIDEC-2013BI053294

PATIENT
  Sex: Female

DRUGS (2)
  1. AVONEX [Suspect]
     Indication: MULTIPLE SCLEROSIS
     Route: 030
     Dates: start: 2005
  2. AVONEX [Suspect]
     Indication: MULTIPLE SCLEROSIS
     Route: 030
     Dates: start: 20130405

REACTIONS (6)
  - Lung neoplasm malignant [Recovered/Resolved]
  - Post procedural infection [Unknown]
  - Surgery [Unknown]
  - Neoplasm malignant [Unknown]
  - Back pain [Unknown]
  - Pain in extremity [Unknown]
